FAERS Safety Report 5949416-2 (Version None)
Quarter: 2008Q4

REPORT INFORMATION
  Report Type: 
  Country: None (occurrence: None)
  Receive Date: 20081112
  Receipt Date: 20081031
  Transmission Date: 20090506
  Serious: Yes (Hospitalization)
  Sender: FDA-Public Use
  Company Number: PHEH2008US08213

PATIENT
  Sex: Female

DRUGS (4)
  1. EXJADE [Suspect]
     Indication: IRON OVERLOAD
     Dosage: UNK
  2. BENAZEPRIL HYDROCHLORIDE [Concomitant]
     Dosage: 40 MG, QD
  3. HYDROCHLOROTHIAZIDE [Concomitant]
  4. HYDROCODONE [Concomitant]

REACTIONS (17)
  - ACUTE HEPATIC FAILURE [None]
  - AGITATION [None]
  - AMMONIA INCREASED [None]
  - BLOOD CREATININE INCREASED [None]
  - CHRONIC OBSTRUCTIVE PULMONARY DISEASE [None]
  - CONFUSIONAL STATE [None]
  - DEPRESSED LEVEL OF CONSCIOUSNESS [None]
  - DIARRHOEA [None]
  - GASTROINTESTINAL TUBE INSERTION [None]
  - HEPATIC ENCEPHALOPATHY [None]
  - LIVER FUNCTION TEST ABNORMAL [None]
  - MENTAL STATUS CHANGES [None]
  - METABOLIC ACIDOSIS [None]
  - PULMONARY HYPERTENSION [None]
  - SERUM FERRITIN INCREASED [None]
  - STAPHYLOCOCCAL INFECTION [None]
  - WHEEZING [None]
